FAERS Safety Report 22385246 (Version 1)
Quarter: 2023Q2

REPORT INFORMATION
  Report Type: Spontaneous
  Country: US (occurrence: None)
  Receive Date: 20230528
  Receipt Date: 20230528
  Transmission Date: 20230722
  Serious: Yes (Other)
  Sender: FDA-Public Use
  Company Number: None

PATIENT
  Age: 55 Year
  Sex: Female

DRUGS (15)
  1. TACROLIMUS [Suspect]
     Active Substance: TACROLIMUS
     Indication: Liver transplant
     Route: 048
     Dates: start: 20230505
  2. ASPIRIN LOW CHW [Concomitant]
  3. BUPROPION HYDROCHLORIDE [Concomitant]
     Active Substance: BUPROPION HYDROCHLORIDE
  4. FLONASE ALGY SPR [Concomitant]
  5. HYDROXYCLOR TAB [Concomitant]
  6. LIDOCAINE PAD [Concomitant]
  7. LINZESS CAP [Concomitant]
  8. MAG OXIDE [Concomitant]
  9. MIRTAZAPINE [Concomitant]
     Active Substance: MIRTAZAPINE
  10. MONTELUKAST [Concomitant]
  11. MYCOPHENOLATE MOFETIL [Concomitant]
     Active Substance: MYCOPHENOLATE MOFETIL
  12. OXYCODONE [Concomitant]
     Active Substance: OXYCODONE
  13. PANTOPRAZOLE [Concomitant]
     Active Substance: PANTOPRAZOLE
  14. PREDNISONE [Concomitant]
     Active Substance: PREDNISONE
  15. TIROSINT [Concomitant]

REACTIONS (1)
  - Fall [None]

NARRATIVE: CASE EVENT DATE: 20230521
